FAERS Safety Report 25240493 (Version 2)
Quarter: 2025Q2

REPORT INFORMATION
  Report Type: Report from Study
  Country: CA (occurrence: CA)
  Receive Date: 20250425
  Receipt Date: 20250430
  Transmission Date: 20250717
  Serious: Yes (Life-Threatening)
  Sender: JOHNSON AND JOHNSON
  Company Number: CA-JNJFOC-20250434462

PATIENT
  Sex: Male
  Weight: 77 kg

DRUGS (1)
  1. REMICADE [Suspect]
     Active Substance: INFLIXIMAB
     Indication: Colitis ulcerative
     Dosage: 7 NUMBER OF UNITS INVOLVED IN THIS COMPLAINT
     Route: 041
     Dates: start: 20220804

REACTIONS (1)
  - Prostate cancer [Not Recovered/Not Resolved]
